FAERS Safety Report 14913623 (Version 1)
Quarter: 2018Q2

REPORT INFORMATION
  Report Type: Spontaneous
  Country: US (occurrence: US)
  Receive Date: 20180518
  Receipt Date: 20180518
  Transmission Date: 20180711
  Serious: No
  Sender: FDA-Public Use
  Company Number: US-BEH-2018090677

PATIENT
  Age: 64 Year
  Sex: Male
  Weight: 80.27 kg

DRUGS (32)
  1. ZEMAIRA [Suspect]
     Active Substance: .ALPHA.1-PROTEINASE INHIBITOR HUMAN
     Indication: ALPHA-1 ANTI-TRYPSIN DEFICIENCY
     Dosage: 60 MG/KG, QW
     Route: 042
     Dates: start: 20141003
  2. OXYGEN. [Concomitant]
     Active Substance: OXYGEN
  3. THEOPHYLLINE [Concomitant]
     Active Substance: THEOPHYLLINE ANHYDROUS
  4. SPRYCEL [Concomitant]
     Active Substance: DASATINIB
  5. GABAPENTIN. [Concomitant]
     Active Substance: GABAPENTIN
  6. SINGULAIR [Concomitant]
     Active Substance: MONTELUKAST SODIUM
  7. ZEMAIRA [Suspect]
     Active Substance: .ALPHA.1-PROTEINASE INHIBITOR HUMAN
     Dosage: 60 MG/KG, TOT
     Route: 042
  8. FLUTICASONE. [Concomitant]
     Active Substance: FLUTICASONE
  9. AZELASTINE. [Concomitant]
     Active Substance: AZELASTINE HYDROCHLORIDE
  10. IPRATROPIUM/ALBUTEROL [Concomitant]
     Active Substance: ALBUTEROL\IPRATROPIUM
  11. VENTOLIN [Concomitant]
     Active Substance: ALBUTEROL SULFATE
  12. VITAMIN B12 [Concomitant]
     Active Substance: CYANOCOBALAMIN
  13. METOCLOPRAMIDE. [Concomitant]
     Active Substance: METOCLOPRAMIDE
  14. IRON [Concomitant]
     Active Substance: IRON
  15. ADVAIR HFA [Concomitant]
     Active Substance: FLUTICASONE PROPIONATE\SALMETEROL XINAFOATE
  16. ASPIRIN. [Concomitant]
     Active Substance: ASPIRIN
  17. AZITHROMYCIN ANHYDROUS. [Concomitant]
     Active Substance: AZITHROMYCIN ANHYDROUS
  18. LORAZEPAM. [Concomitant]
     Active Substance: LORAZEPAM
  19. LEVOTHYROXINE. [Concomitant]
     Active Substance: LEVOTHYROXINE
  20. ALEVE [Concomitant]
     Active Substance: NAPROXEN SODIUM
  21. LMX                                /00033401/ [Concomitant]
  22. EPINEPHRINE. [Concomitant]
     Active Substance: EPINEPHRINE
  23. DALIRESP [Concomitant]
     Active Substance: ROFLUMILAST
  24. METOPROLOL SUCCINATE. [Concomitant]
     Active Substance: METOPROLOL SUCCINATE
  25. FOLITAB                            /00024201/ [Concomitant]
  26. SODIUM CHLORIDE. [Concomitant]
     Active Substance: SODIUM CHLORIDE
  27. MOMETASONE [Concomitant]
     Active Substance: MOMETASONE
  28. PENTASA [Concomitant]
     Active Substance: MESALAMINE
  29. OMEPRAZOLE. [Concomitant]
     Active Substance: OMEPRAZOLE
  30. DIPHENHYDRAMINE. [Concomitant]
     Active Substance: DIPHENHYDRAMINE
  31. LOSARTAN. [Concomitant]
     Active Substance: LOSARTAN
  32. ATORVASTATIN [Concomitant]
     Active Substance: ATORVASTATIN

REACTIONS (3)
  - Oedema [Unknown]
  - Oedema [Unknown]
  - Dyspnoea [Unknown]

NARRATIVE: CASE EVENT DATE: 20180511
